FAERS Safety Report 5579011-9 (Version None)
Quarter: 2007Q4

REPORT INFORMATION
  Report Type: 
  Country: None (occurrence: None)
  Receive Date: 20071228
  Receipt Date: 20071128
  Transmission Date: 20080405
  Serious: Yes (Other)
  Sender: FDA-Public Use
  Company Number: ZYD-AE-07-107

PATIENT
  Age: 57 Year
  Sex: Male

DRUGS (4)
  1. METFORMIN HCL [Suspect]
     Indication: DIABETES MELLITUS
     Dosage: 1000MG BID - PO
     Route: 048
  2. PRANDIN [Suspect]
     Indication: DIABETES MELLITUS
     Dosage: 1MG
  3. LANTUS [Suspect]
     Indication: DIABETES MELLITUS
  4. AVANDIA [Suspect]
     Indication: DIABETES MELLITUS

REACTIONS (2)
  - DIABETES MELLITUS INADEQUATE CONTROL [None]
  - MYOCARDIAL INFARCTION [None]
